FAERS Safety Report 5256078-9 (Version None)
Quarter: 2007Q1

REPORT INFORMATION
  Report Type: 
  Country: None (occurrence: None)
  Receive Date: 20070306
  Receipt Date: 20070228
  Transmission Date: 20070707
  Serious: Yes (Death, Hospitalization)
  Sender: FDA-Public Use
  Company Number: 2006UW21563

PATIENT
  Age: 471 Month
  Sex: Female
  Weight: 125.4 kg

DRUGS (2)
  1. SEROQUEL [Suspect]
     Indication: DEPRESSION
     Dosage: 600 MG - 1200 MG
     Route: 048
     Dates: start: 20040401, end: 20060106
  2. EFFEXOR [Concomitant]
     Dates: start: 20051001, end: 20051101

REACTIONS (2)
  - DEATH [None]
  - DIABETES MELLITUS NON-INSULIN-DEPENDENT [None]
